FAERS Safety Report 6451095-5 (Version None)
Quarter: 2009Q4

REPORT INFORMATION
  Report Type: 
  Country: None (occurrence: None)
  Receive Date: 20091123
  Receipt Date: 20091111
  Transmission Date: 20100525
  Serious: Yes (Other)
  Sender: FDA-Public Use
  Company Number: US-PFIZER INC-2009296727

PATIENT
  Sex: Male
  Weight: 83.9 kg

DRUGS (6)
  1. DETROL LA [Suspect]
     Indication: HYPERTONIC BLADDER
     Dosage: 4 MG, 1X/DAY
     Route: 048
     Dates: start: 20080101
  2. VESICARE [Suspect]
     Indication: HYPERTONIC BLADDER
     Dosage: 10 MG, 2X/DAY
     Route: 048
     Dates: start: 20090101, end: 20090101
  3. METFORMIN [Concomitant]
     Indication: DIABETES MELLITUS
     Dosage: UNK
     Route: 048
  4. TAMSULOSIN HYDROCHLORIDE [Concomitant]
     Indication: RESIDUAL URINE
     Dosage: 0.4 MG, 2X/DAY
     Route: 048
  5. LANTUS [Concomitant]
     Indication: DIABETES MELLITUS
     Dosage: 21 UNITS DAILY
     Route: 058
  6. VALSARTAN [Concomitant]
     Indication: HYPERTENSION
     Dosage: 40 MG, 1X/DAY
     Route: 048

REACTIONS (5)
  - BLADDER DISORDER [None]
  - DRUG EFFECT INCREASED [None]
  - HYPERTONIC BLADDER [None]
  - PROSTATE INFECTION [None]
  - WEIGHT INCREASED [None]
